FAERS Safety Report 13864440 (Version 1)
Quarter: 2017Q3

REPORT INFORMATION
  Report Type: Spontaneous
  Country: US (occurrence: US)
  Receive Date: 20170814
  Receipt Date: 20170814
  Transmission Date: 20171127
  Serious: No
  Sender: FDA-Public Use
  Company Number: US-JNJFOC-20170809156

PATIENT
  Age: 14 Month
  Sex: Female

DRUGS (5)
  1. METHADONE [Suspect]
     Active Substance: METHADONE HYDROCHLORIDE
     Indication: TRIGEMINAL NEURALGIA
     Route: 065
  2. GABAPENTINE [Suspect]
     Active Substance: GABAPENTIN
     Indication: TRIGEMINAL NEURALGIA
     Route: 065
  3. FENTANYL. [Suspect]
     Active Substance: FENTANYL
     Indication: TRIGEMINAL NEURALGIA
     Route: 065
  4. BACLOFEN. [Suspect]
     Active Substance: BACLOFEN
     Indication: TRIGEMINAL NEURALGIA
     Route: 065
  5. PHENOBARBITAL. [Suspect]
     Active Substance: PHENOBARBITAL
     Indication: TRIGEMINAL NEURALGIA
     Route: 065

REACTIONS (3)
  - Off label use [Unknown]
  - Drug ineffective [Unknown]
  - Drug administered to patient of inappropriate age [Unknown]
